FAERS Safety Report 6653208-9 (Version None)
Quarter: 2010Q1

REPORT INFORMATION
  Report Type: 
  Country: None (occurrence: None)
  Receive Date: 20100326
  Receipt Date: 20100315
  Transmission Date: 20100710
  Serious: Yes (Death)
  Sender: FDA-Public Use
  Company Number: US-ELI_LILLY_AND_COMPANY-US201002002263

PATIENT
  Age: 55 Year
  Sex: Female
  Weight: 81.633 kg

DRUGS (5)
  1. ZYPREXA [Suspect]
     Indication: BIPOLAR DISORDER
     Dosage: 10 MG, DAILY (1/D)
     Dates: start: 20080701
  2. ZYPREXA [Suspect]
     Dosage: 1 D/F, UNK
     Dates: start: 20091201
  3. XANAX [Concomitant]
     Indication: PANIC DISORDER
     Dates: start: 20070101
  4. MOBIC [Concomitant]
     Indication: PAIN
  5. FENTANYL [Concomitant]
     Indication: PAIN
     Route: 062

REACTIONS (2)
  - COMPLETED SUICIDE [None]
  - PAIN [None]
